FAERS Safety Report 22039717 (Version 1)
Quarter: 2023Q1

REPORT INFORMATION
  Report Type: Spontaneous
  Country: US (occurrence: US)
  Receive Date: 20230227
  Receipt Date: 20230227
  Transmission Date: 20230418
  Serious: Yes (Hospitalization)
  Sender: FDA-Public Use
  Company Number: US-CTI BIOPHARMA-2023US03401

PATIENT

DRUGS (12)
  1. VONJO [Suspect]
     Active Substance: PACRITINIB
     Indication: Myelofibrosis
     Dosage: 200 MG, BID
     Route: 048
     Dates: start: 20220318
  2. TYLENOL WITH CODEINE NO. 2 [Concomitant]
  3. BUPROPION [Concomitant]
     Active Substance: BUPROPION
  4. HYDROCHLOROTHIAZIDE [Concomitant]
     Active Substance: HYDROCHLOROTHIAZIDE
  5. HYDROXYUREA [Concomitant]
     Active Substance: HYDROXYUREA
  6. LEVOTHYROXINE [Concomitant]
     Active Substance: LEVOTHYROXINE
  7. LOSARTAN [Concomitant]
     Active Substance: LOSARTAN
  8. ONDANSETRON [Concomitant]
     Active Substance: ONDANSETRON
  9. RETACRIT [Concomitant]
     Active Substance: EPOETIN ALFA-EPBX
  10. TEMAZEPAM [Concomitant]
     Active Substance: TEMAZEPAM
  11. THIAMINE [Concomitant]
     Active Substance: THIAMINE
  12. VALACYCLOVIR HYDROCHLORIDE [Concomitant]
     Active Substance: VALACYCLOVIR HYDROCHLORIDE

REACTIONS (2)
  - Influenza [Unknown]
  - Product dose omission issue [Unknown]
